FAERS Safety Report 25460923 (Version 1)
Quarter: 2025Q2

REPORT INFORMATION
  Report Type: Spontaneous
  Country: US (occurrence: None)
  Receive Date: 20250619
  Receipt Date: 20250619
  Transmission Date: 20250716
  Serious: Yes (Other)
  Sender: FDA-CTU
  Company Number: None

PATIENT
  Sex: Female

DRUGS (10)
  1. LENALIDOMIDE [Suspect]
     Active Substance: LENALIDOMIDE
     Indication: Plasma cell myeloma
     Dosage: FREQUENCY : DAILY;?
     Route: 048
     Dates: start: 20250514
  2. ACETAMINOPHEN [Concomitant]
     Active Substance: ACETAMINOPHEN
  3. ADVAIR DISKU AER [Concomitant]
  4. AIR SUPRA AER [Concomitant]
  5. ALBUTEROL AER HFA [Concomitant]
  6. ALPRAZOLAM [Concomitant]
     Active Substance: ALPRAZOLAM
  7. ASPIRIN LOW EC [Concomitant]
  8. AZELASTINE SPR 0.1% [Concomitant]
  9. CLINDAMYCIN GEL 1% [Concomitant]
  10. CLOTRIMAZOLE CRE 1% [Concomitant]

REACTIONS (3)
  - Full blood count abnormal [None]
  - Hip surgery [None]
  - Intentional dose omission [None]
